FAERS Safety Report 9187233 (Version 1)
Quarter: 2013Q1

REPORT INFORMATION
  Report Type: Spontaneous
  Country: BE (occurrence: BE)
  Receive Date: 20130325
  Receipt Date: 20130325
  Transmission Date: 20140127
  Serious: Yes (Life-Threatening, Hospitalization)
  Sender: FDA-Public Use
  Company Number: BE-MPIJNJ-2013-02121

PATIENT
  Sex: 0

DRUGS (3)
  1. VELCADE [Suspect]
     Indication: PLASMA CELL MYELOMA
     Dosage: 1.6 UNK, UNK
     Route: 058
     Dates: start: 20130307, end: 20130307
  2. DEXAMETHASONE [Concomitant]
     Indication: PLASMA CELL MYELOMA
     Dosage: UNK
     Route: 048
     Dates: start: 20130306, end: 20130308
  3. THALIDOMIDE [Concomitant]
     Indication: PLASMA CELL MYELOMA
     Dosage: UNK
     Route: 048
     Dates: start: 20130307

REACTIONS (5)
  - Pulmonary toxicity [Recovered/Resolved]
  - Acute respiratory distress syndrome [Recovered/Resolved]
  - Lung infiltration [Recovered/Resolved]
  - Hyperaemia [Recovered/Resolved]
  - Hyperthermia [Recovered/Resolved]
